FAERS Safety Report 14559537 (Version 1)
Quarter: 2018Q1

REPORT INFORMATION
  Report Type: Report from Study
  Country: US (occurrence: US)
  Receive Date: 20180221
  Receipt Date: 20180221
  Transmission Date: 20180509
  Serious: Yes (Death)
  Sender: FDA-Public Use
  Company Number: US-EXELIXIS-CABO-18012451

PATIENT
  Sex: Male

DRUGS (8)
  1. GABAPENTIN. [Concomitant]
     Active Substance: GABAPENTIN
  2. COLACE [Concomitant]
     Active Substance: DOCUSATE SODIUM
  3. ACETAMIN [Concomitant]
     Active Substance: ACETAMINOPHEN
  4. CABOMETYX [Suspect]
     Active Substance: CABOZANTINIB S-MALATE
     Indication: RENAL CANCER
     Dosage: 60 MG, QD
     Route: 048
     Dates: start: 20170319
  5. FLOMAX [Concomitant]
     Active Substance: TAMSULOSIN HYDROCHLORIDE
  6. CODEINE SULFATE. [Concomitant]
     Active Substance: CODEINE SULFATE
  7. PREDNISONE. [Concomitant]
     Active Substance: PREDNISONE
  8. ZEASORB [Concomitant]
     Active Substance: MICONAZOLE NITRATE

REACTIONS (1)
  - Death [Fatal]
